FAERS Safety Report 5765992-7 (Version None)
Quarter: 2008Q2

REPORT INFORMATION
  Report Type: 
  Country: None (occurrence: None)
  Receive Date: 20080611
  Receipt Date: 20080421
  Transmission Date: 20081010
  Serious: Yes (Hospitalization)
  Sender: FDA-Public Use
  Company Number: US-BRISTOL-MYERS SQUIBB COMPANY-14163471

PATIENT
  Sex: Male

DRUGS (10)
  1. CARBIDOPA + LEVODOPA [Suspect]
     Indication: PARKINSON'S DISEASE
     Dosage: 1 DOSAGE FORM = 25/100 MG.
     Route: 048
  2. BUPROPION HCL [Suspect]
     Indication: DEPRESSION
     Route: 048
  3. SERTRALINE HCL [Suspect]
     Indication: DEPRESSION
     Route: 048
  4. CLONAPAM [Concomitant]
  5. EZETIMIBE + SIMVASTATIN [Concomitant]
  6. FLUDROCORTISONE ACETATE [Concomitant]
  7. FOLIC ACID [Concomitant]
  8. LACTULOSE [Concomitant]
  9. LORAZEPAM [Concomitant]
  10. QUINAPRIL HCL [Concomitant]

REACTIONS (2)
  - LOSS OF CONSCIOUSNESS [None]
  - SYNCOPE [None]
